FAERS Safety Report 24961485 (Version 2)
Quarter: 2025Q1

REPORT INFORMATION
  Report Type: Report from Study
  Country: FR (occurrence: FR)
  Receive Date: 20250212
  Receipt Date: 20250218
  Transmission Date: 20250409
  Serious: Yes (Death, Hospitalization)
  Sender: DAIICHI
  Company Number: FR-DSJP-DS-2025-124625-FR

PATIENT
  Sex: Female
  Weight: 68 kg

DRUGS (3)
  1. ENHERTU [Suspect]
     Active Substance: FAM-TRASTUZUMAB DERUXTECAN-NXKI
     Indication: HER2 low breast cancer
     Route: 042
     Dates: start: 20241025, end: 20241025
  2. ENHERTU [Suspect]
     Active Substance: FAM-TRASTUZUMAB DERUXTECAN-NXKI
     Indication: Breast cancer metastatic
  3. UNSPECIFIED INGREDIENT [Concomitant]
     Active Substance: UNSPECIFIED INGREDIENT
     Indication: Antiemetic supportive care
     Route: 065

REACTIONS (4)
  - Cerebral haematoma [Fatal]
  - Hemiparesis [Not Recovered/Not Resolved]
  - Facial paralysis [Not Recovered/Not Resolved]
  - Cerebral ischaemia [Not Recovered/Not Resolved]

NARRATIVE: CASE EVENT DATE: 20250119
